FAERS Safety Report 17193918 (Version 1)
Quarter: 2019Q4

REPORT INFORMATION
  Report Type: Report from Study
  Country: None (occurrence: JP)
  Receive Date: 20191223
  Receipt Date: 20191223
  Transmission Date: 20200122
  Serious: Yes (Other)
  Sender: FDA-Public Use
  Company Number: JP-ABBVIE-19P-087-3002574-00

PATIENT
  Age: 35 Year
  Sex: Female
  Weight: 44 kg

DRUGS (4)
  1. VENETOCLAX. [Suspect]
     Active Substance: VENETOCLAX
     Indication: HAEMATOLOGICAL MALIGNANCY
     Route: 048
     Dates: start: 20191121
  2. ABBV-621 [Suspect]
     Active Substance: EFTOZANERMIN ALFA
     Indication: HAEMATOLOGICAL MALIGNANCY
  3. ABBV-621 [Suspect]
     Active Substance: EFTOZANERMIN ALFA
     Indication: NEOPLASM
     Route: 042
     Dates: start: 20191112
  4. VENETOCLAX. [Suspect]
     Active Substance: VENETOCLAX
     Indication: NEOPLASM
     Route: 048
     Dates: start: 20191113, end: 20191113

REACTIONS (1)
  - Cytokine release syndrome [Recovered/Resolved]

NARRATIVE: CASE EVENT DATE: 20191113
